FAERS Safety Report 7531860-3 (Version None)
Quarter: 2011Q2

REPORT INFORMATION
  Report Type: 
  Country: None (occurrence: None)
  Receive Date: 20110608
  Receipt Date: 20110601
  Transmission Date: 20111010
  Serious: Yes (Hospitalization)
  Sender: FDA-Public Use
  Company Number: JP-ROCHE-781051

PATIENT

DRUGS (1)
  1. ROCEPHIN [Suspect]
     Indication: PERITONSILLITIS
     Route: 041
     Dates: start: 20110516

REACTIONS (1)
  - CHOLELITHIASIS [None]
